FAERS Safety Report 15671589 (Version 5)
Quarter: 2019Q3

REPORT INFORMATION
  Report Type: Report from Study
  Country: US (occurrence: US)
  Receive Date: 20181129
  Receipt Date: 20190927
  Transmission Date: 20191004
  Serious: Yes (Other)
  Sender: FDA-Public Use
  Company Number: US-TESARO, INC-US-2018TSO04152

PATIENT
  Age: 71 Year
  Sex: Female
  Weight: 93 kg

DRUGS (20)
  1. MAGNESIUM [Concomitant]
     Active Substance: MAGNESIUM
  2. CITRUCEL [Concomitant]
     Active Substance: METHYLCELLULOSE (4000 MPA.S)
     Dosage: 300 MG, QD
     Route: 048
  3. PROCHLORPERAZINE EDISYLATE. [Concomitant]
     Active Substance: PROCHLORPERAZINE EDISYLATE
  4. NIRAPARIB CAPSULE [Suspect]
     Active Substance: NIRAPARIB
     Dosage: 300 MG, QPM WITHOUT FOOD
     Route: 048
     Dates: start: 20180731
  5. GABAPENTIN. [Concomitant]
     Active Substance: GABAPENTIN
  6. MELOXICAM. [Concomitant]
     Active Substance: MELOXICAM
  7. VITAMIN D3 [Concomitant]
     Active Substance: CHOLECALCIFEROL
  8. CALCIUM [Concomitant]
     Active Substance: CALCIUM
  9. NIRAPARIB CAPSULE [Suspect]
     Active Substance: NIRAPARIB
     Dosage: 300 MG, HS
     Route: 048
  10. AMLODIPINE/VALSARTAN/HYDROCHLOROTHIAZIDE [Concomitant]
     Active Substance: AMLODIPINE\HYDROCHLOROTHIAZIDE\VALSARTAN
     Dosage: 10 MG, UNK
     Dates: start: 20180813
  11. PRAVASTATIN. [Concomitant]
     Active Substance: PRAVASTATIN
  12. VITAMIN B6 [Concomitant]
     Active Substance: PYRIDOXINE HYDROCHLORIDE
  13. NORCO [Concomitant]
     Active Substance: ACETAMINOPHEN\HYDROCODONE BITARTRATE
  14. ONDANSETRON [Concomitant]
     Active Substance: ONDANSETRON
  15. MULTIVITAMIN [Concomitant]
     Active Substance: VITAMINS
  16. ALPHA LIPOIC ACID [Concomitant]
     Active Substance: .ALPHA.-LIPOIC ACID
  17. AMLODIPINE/VALSARTAN/HYDROCHLOROTHIAZIDE [Concomitant]
     Active Substance: AMLODIPINE\HYDROCHLOROTHIAZIDE\VALSARTAN
     Dosage: 5 MG, QD
  18. CLARITIN [Concomitant]
     Active Substance: LORATADINE
  19. LEVOTHYROXINE SODIUM. [Concomitant]
     Active Substance: LEVOTHYROXINE SODIUM
  20. VITAMIN E [Concomitant]
     Active Substance: .ALPHA.-TOCOPHEROL

REACTIONS (17)
  - Blood pressure increased [Recovered/Resolved]
  - Insomnia [Not Recovered/Not Resolved]
  - Fatigue [Not Recovered/Not Resolved]
  - Carbohydrate antigen 125 increased [Unknown]
  - Diarrhoea [Recovered/Resolved]
  - Product dose omission [Recovered/Resolved]
  - Arthropathy [Unknown]
  - Weight decreased [Not Recovered/Not Resolved]
  - Asthenia [Recovering/Resolving]
  - Arthralgia [Not Recovered/Not Resolved]
  - Nausea [Unknown]
  - Constipation [Recovering/Resolving]
  - Abdominal pain upper [Unknown]
  - Performance status decreased [Unknown]
  - Heart rate increased [Unknown]
  - Vomiting [Unknown]
  - Decreased appetite [Unknown]

NARRATIVE: CASE EVENT DATE: 201807
